FAERS Safety Report 13702026 (Version 1)
Quarter: 2017Q2

REPORT INFORMATION
  Report Type: Spontaneous
  Country: US (occurrence: US)
  Receive Date: 20170629
  Receipt Date: 20170629
  Transmission Date: 20170830
  Serious: No
  Sender: FDA-Public Use
  Company Number: US-JNJFOC-20160805563

PATIENT
  Age: 67 Year
  Sex: Male
  Weight: 86.18 kg

DRUGS (5)
  1. DIAVAN [Concomitant]
     Active Substance: ASCORBIC ACID\CHROMIUM\SELENIUM\VANADYL SULFATE
     Indication: HYPERTENSION
     Dosage: HALF TABLET OF 40 MG STRENGTH
     Route: 065
  2. ATORVASTATIN [Concomitant]
     Active Substance: ATORVASTATIN
     Indication: BLOOD CHOLESTEROL INCREASED
     Route: 065
  3. BABY ASPIRIN [Concomitant]
     Active Substance: ASPIRIN
     Indication: CARDIAC DISORDER
     Route: 065
  4. ESCITALOPRAM [Concomitant]
     Active Substance: ESCITALOPRAM OXALATE
     Indication: STRESS
     Route: 065
  5. KETOCONAZOLE. [Suspect]
     Active Substance: KETOCONAZOLE
     Indication: SEBORRHOEIC DERMATITIS
     Route: 061
     Dates: start: 20160805

REACTIONS (1)
  - Hair texture abnormal [Not Recovered/Not Resolved]

NARRATIVE: CASE EVENT DATE: 20160805
